FAERS Safety Report 25041652 (Version 1)
Quarter: 2025Q1

REPORT INFORMATION
  Report Type: Spontaneous
  Country: US (occurrence: US)
  Receive Date: 20250305
  Receipt Date: 20250305
  Transmission Date: 20250409
  Serious: No
  Sender: AMPHASTAR
  Company Number: US-Amphastar Pharmaceuticals, Inc.-2172265

PATIENT

DRUGS (3)
  1. GLUCAGON [Suspect]
     Active Substance: GLUCAGON
  2. GLUCAGON [Suspect]
     Active Substance: GLUCAGON
  3. GLUCAGON [Suspect]
     Active Substance: GLUCAGON

REACTIONS (1)
  - No adverse event [Recovered/Resolved]
